FAERS Safety Report 21843672 (Version 1)
Quarter: 2023Q1

REPORT INFORMATION
  Report Type: Spontaneous
  Country: CN (occurrence: CN)
  Receive Date: 20230110
  Receipt Date: 20230110
  Transmission Date: 20230418
  Serious: Yes (Disabling, Other)
  Sender: FDA-Public Use
  Company Number: CN-PFIZER INC-PV202300003602

PATIENT
  Age: 85 Year
  Sex: Female

DRUGS (1)
  1. NIRMATRELVIR\RITONAVIR [Suspect]
     Active Substance: NIRMATRELVIR\RITONAVIR
     Dosage: 1 DF, 2X/DAY (1 TABLET, 2X/DAY)
     Route: 048
     Dates: start: 20221223, end: 20221227

REACTIONS (7)
  - Acute kidney injury [Recovering/Resolving]
  - Dyspnoea [Unknown]
  - Cough [Unknown]
  - Hypertension [Unknown]
  - Rales [Recovering/Resolving]
  - Productive cough [Unknown]
  - Incorrect dose administered [Unknown]

NARRATIVE: CASE EVENT DATE: 20221223
